FAERS Safety Report 11043694 (Version 1)
Quarter: 2015Q2

REPORT INFORMATION
  Report Type: Spontaneous
  Country: US (occurrence: None)
  Receive Date: 20150416
  Receipt Date: 20150416
  Transmission Date: 20150821
  Serious: No
  Sender: FDA-Public Use
  Company Number: None

PATIENT
  Age: 74 Year
  Sex: Female
  Weight: 78.93 kg

DRUGS (11)
  1. LEVOLTHYROXINE [Concomitant]
  2. ALPRAZOLAM. [Concomitant]
     Active Substance: ALPRAZOLAM
  3. ELIQUIS [Suspect]
     Active Substance: APIXABAN
     Indication: CORONARY ARTERIAL STENT INSERTION
     Dosage: TAKEN BY MOUTH
     Dates: start: 20150203, end: 20150408
  4. CLOPIDOGREL [Concomitant]
     Active Substance: CLOPIDOGREL BISULFATE
  5. VERAPAMIL [Concomitant]
     Active Substance: VERAPAMIL HYDROCHLORIDE
  6. ASPIRIN. [Concomitant]
     Active Substance: ASPIRIN
  7. ADVIL 2 [Concomitant]
  8. CALCIUM [Concomitant]
     Active Substance: CALCIUM
  9. ELIQUIS [Suspect]
     Active Substance: APIXABAN
     Indication: MYOCARDIAL INFARCTION
     Dosage: TAKEN BY MOUTH
     Dates: start: 20150203, end: 20150408
  10. FLUTICASONE [Concomitant]
     Active Substance: FLUTICASONE\FLUTICASONE PROPIONATE
  11. VIT. D [Concomitant]

REACTIONS (4)
  - Paraesthesia [None]
  - Muscle spasms [None]
  - Fall [None]
  - Dizziness [None]
